FAERS Safety Report 20626038 (Version 1)
Quarter: 2022Q1

REPORT INFORMATION
  Report Type: Report from Study
  Country: US (occurrence: US)
  Receive Date: 20220323
  Receipt Date: 20220323
  Transmission Date: 20220423
  Serious: Yes (Hospitalization)
  Sender: FDA-Public Use
  Company Number: US-ABBVIE-22K-163-4326504-00

PATIENT
  Sex: Female

DRUGS (2)
  1. DUOPA [Suspect]
     Active Substance: CARBIDOPA\LEVODOPA
     Indication: Parkinson^s disease
     Route: 050
     Dates: start: 20210622
  2. DUOPA [Suspect]
     Active Substance: CARBIDOPA\LEVODOPA

REACTIONS (3)
  - Respiratory disorder [Unknown]
  - Dyspnoea [Unknown]
  - Dystonia [Unknown]
